FAERS Safety Report 22039732 (Version 2)
Quarter: 2023Q1

REPORT INFORMATION
  Report Type: Spontaneous
  Country: IT (occurrence: IT)
  Receive Date: 20230227
  Receipt Date: 20230301
  Transmission Date: 20230418
  Serious: No
  Sender: FDA-Public Use
  Company Number: IT-MYLANLABS-2023M1019953

PATIENT
  Sex: Male

DRUGS (2)
  1. LYRICA [Suspect]
     Active Substance: PREGABALIN
     Indication: Insomnia
     Dosage: 25 MILLIGRAM, QD
     Route: 065
     Dates: start: 202209
  2. LITHIUM SULFATE [Concomitant]
     Active Substance: LITHIUM SULFATE
     Indication: Affective disorder
     Dosage: UNK
     Route: 065
     Dates: start: 2021

REACTIONS (5)
  - Lid sulcus deepened [Unknown]
  - Fatigue [Unknown]
  - Nausea [Unknown]
  - Headache [Unknown]
  - Off label use [Unknown]
